FAERS Safety Report 6613765-5 (Version None)
Quarter: 2010Q1

REPORT INFORMATION
  Report Type: 
  Country: None (occurrence: None)
  Receive Date: 20100225
  Receipt Date: 20090211
  Transmission Date: 20100710
  Serious: Yes (Hospitalization)
  Sender: FDA-Public Use
  Company Number: 432842

PATIENT
  Age: 23 Year
  Sex: Male
  Weight: 77.1 kg

DRUGS (3)
  1. ACCUTANE [Suspect]
     Indication: ACNE
     Dosage: 80 MG DAILY ORAL
     Route: 048
     Dates: start: 20000203, end: 20000630
  2. ERYTHROCIN (ERYTHROMYCIN) [Concomitant]
  3. VITAMIN E (ALPHA-TOCOPHEROL) [Concomitant]

REACTIONS (7)
  - ANAEMIA [None]
  - COLITIS ULCERATIVE [None]
  - CROHN'S DISEASE [None]
  - DRY SKIN [None]
  - EPIDIDYMAL CYST [None]
  - EPISTAXIS [None]
  - INFLAMMATORY BOWEL DISEASE [None]
